FAERS Safety Report 6913925-X (Version None)
Quarter: 2010Q3

REPORT INFORMATION
  Report Type: 
  Country: None (occurrence: None)
  Receive Date: 20100809
  Receipt Date: 20100805
  Transmission Date: 20110219
  Serious: Yes (Hospitalization)
  Sender: FDA-Public Use
  Company Number: IT-BRISTOL-MYERS SQUIBB COMPANY-15177793

PATIENT
  Age: 68 Year
  Sex: Male

DRUGS (8)
  1. BB-K8 INJ 500 MG/2 ML [Suspect]
     Indication: INTERSTITIAL LUNG DISEASE
     Route: 042
     Dates: start: 20100621, end: 20100624
  2. LEVOXACIN [Suspect]
     Indication: INTERSTITIAL LUNG DISEASE
     Dosage: 5 MG/ML SOLUTION FOR INFUSION
     Route: 042
     Dates: start: 20100622, end: 20100623
  3. CEFTRIAXONE [Suspect]
     Indication: INTERSTITIAL LUNG DISEASE
     Dosage: 1 DF = CEFTRIAXONE SODIUM 1 G/10 ML POWDER AND SOLVENT
     Dates: start: 20100621, end: 20100624
  4. ANTRA [Concomitant]
     Dosage: 20 MG MODIFIED RELEASE ORAL CAPS
     Route: 048
  5. ZYLORIC [Concomitant]
     Dosage: 300 MG ORAL TABS
     Route: 048
  6. ZEFFIX [Concomitant]
     Dosage: FILM COATED ORAL TABS  DOSAGE=10MG
     Route: 048
  7. BACTRIM [Concomitant]
     Dosage: TABS
     Route: 048
  8. ZELITREX [Concomitant]
     Dosage: 500 MG FILM COATED ORAL TABS
     Route: 048

REACTIONS (1)
  - PURPURA [None]
